FAERS Safety Report 5788887-1 (Version None)
Quarter: 2008Q2

REPORT INFORMATION
  Report Type: 
  Country: None (occurrence: None)
  Receive Date: 20080626
  Receipt Date: 20071212
  Transmission Date: 20081010
  Serious: No
  Sender: FDA-Public Use
  Company Number: US-ASTRAZENECA-2007UW28330

PATIENT
  Age: 64 Year
  Sex: Female
  Weight: 53.1 kg

DRUGS (5)
  1. PULMICORT FLEXHALER [Suspect]
     Dosage: 180 MCG ONE PUFF BID
     Route: 055
     Dates: start: 20071211
  2. ATENOLOL [Concomitant]
  3. SYNTHROID [Concomitant]
  4. SIMVASTATIN [Concomitant]
  5. COMBIVENT [Concomitant]

REACTIONS (3)
  - DRY THROAT [None]
  - DYSPNOEA [None]
  - NASAL DRYNESS [None]
